FAERS Safety Report 8855037 (Version 1)
Quarter: 2012Q4

REPORT INFORMATION
  Report Type: 
  Country: US (occurrence: US)
  Receive Date: 20121023
  Receipt Date: 20121023
  Transmission Date: 20130627
  Serious: No
  Sender: FDA-Public Use
  Company Number: US-BAYER-2012-110585

PATIENT
  Age: 84 Year
  Sex: Male
  Weight: 88.44 kg

DRUGS (3)
  1. ALEVE CAPLET/TABLET,MIDOL EXTENDED RELIEF CAPLET [Suspect]
     Indication: ARTHRITIS
     Dosage: UNK
     Dates: start: 2010
  2. DILANTIN [Concomitant]
  3. VITAMINS [Concomitant]

REACTIONS (1)
  - No adverse event [Not Recovered/Not Resolved]
